FAERS Safety Report 24882502 (Version 5)
Quarter: 2025Q3

REPORT INFORMATION
  Report Type: Report from Study
  Country: US (occurrence: US)
  Receive Date: 20250124
  Receipt Date: 20250716
  Transmission Date: 20251020
  Serious: Yes (Other)
  Sender: SUNOVION
  Company Number: US-SMPA-2025SPA000506

PATIENT

DRUGS (3)
  1. ORGOVYX [Suspect]
     Active Substance: RELUGOLIX
     Indication: Prostate cancer
     Route: 048
  2. ORGOVYX [Suspect]
     Active Substance: RELUGOLIX
     Dosage: 120 MG, QD
     Route: 048
     Dates: start: 20241127
  3. FLOMAX [Suspect]
     Active Substance: TAMSULOSIN HYDROCHLORIDE
     Indication: Urinary tract obstruction
     Route: 065

REACTIONS (14)
  - Urinary tract obstruction [Unknown]
  - Arachnoiditis [Not Recovered/Not Resolved]
  - Urethritis noninfective [Unknown]
  - Osteoarthritis [Unknown]
  - Muscle spasms [Unknown]
  - Crying [Unknown]
  - Emotional disorder [Unknown]
  - Presyncope [Unknown]
  - Bladder disorder [Unknown]
  - Anal inflammation [Unknown]
  - Urinary tract infection [Unknown]
  - Diarrhoea [Unknown]
  - Hot flush [Unknown]
  - Anaemia [Unknown]

NARRATIVE: CASE EVENT DATE: 20250228
